FAERS Safety Report 12037413 (Version 1)
Quarter: 2016Q1

REPORT INFORMATION
  Report Type: Spontaneous
  Country: US (occurrence: None)
  Receive Date: 20160205
  Receipt Date: 20160205
  Transmission Date: 20160526
  Serious: Yes (Other)
  Sender: FDA-Public Use
  Company Number: None

PATIENT
  Age: 77 Year
  Sex: Female
  Weight: 107.5 kg

DRUGS (12)
  1. PREDNISONE. [Concomitant]
     Active Substance: PREDNISONE
  2. CALTRATE [Concomitant]
     Active Substance: CALCIUM CARBONATE
  3. MULTI VITAMIN [Concomitant]
     Active Substance: VITAMINS
  4. ALLOPURINOL. [Concomitant]
     Active Substance: ALLOPURINOL
  5. JANUVIA [Suspect]
     Active Substance: SITAGLIPTIN PHOSPHATE
     Indication: DIABETES MELLITUS
     Route: 048
  6. MY BERG [Concomitant]
  7. CADET [Concomitant]
  8. FLORIST MIDEAST [Concomitant]
  9. VITAMIN B12 [Concomitant]
     Active Substance: CYANOCOBALAMIN
  10. METOPROLOL. [Concomitant]
     Active Substance: METOPROLOL
  11. COLOYRS [Concomitant]
  12. LISNIOPRIL [Concomitant]

REACTIONS (2)
  - Blood glucose increased [None]
  - Fall [None]

NARRATIVE: CASE EVENT DATE: 20151126
